FAERS Safety Report 5026087-3 (Version None)
Quarter: 2006Q2

REPORT INFORMATION
  Report Type: 
  Country: None (occurrence: None)
  Receive Date: 20060612
  Receipt Date: 20060612
  Transmission Date: 20061013
  Serious: Yes (Life-Threatening, Hospitalization)
  Sender: FDA-Public Use
  Company Number: None

PATIENT
  Age: 30 Year
  Sex: Male
  Weight: 84 kg

DRUGS (4)
  1. TACROLIMUS [Suspect]
     Indication: THROMBOTIC MICROANGIOPATHY
     Dosage: 6 MG BID PO
     Route: 048
     Dates: start: 20060519, end: 20060523
  2. MMF [Concomitant]
  3. GANCICLOVIR [Concomitant]
  4. PREDNISONE [Concomitant]

REACTIONS (2)
  - BLOOD CREATININE INCREASED [None]
  - THROMBOTIC MICROANGIOPATHY [None]
